FAERS Safety Report 4282061-6 (Version None)
Quarter: 2004Q1

REPORT INFORMATION
  Report Type: 
  Country: None (occurrence: None)
  Receive Date: 20040112
  Receipt Date: 20030822
  Transmission Date: 20041129
  Serious: Yes (Other)
  Sender: FDA-Public Use
  Company Number: US-JNJFOC-20030804805

PATIENT
  Sex: Female

DRUGS (3)
  1. REOPRO [Suspect]
     Indication: CORONARY ARTERY SURGERY
     Dates: start: 20030822, end: 20030822
  2. PLAVIX [Concomitant]
  3. HEPARIN [Concomitant]

REACTIONS (1)
  - THROMBOCYTOPENIA [None]
